FAERS Safety Report 22068444 (Version 1)
Quarter: 2023Q1

REPORT INFORMATION
  Report Type: Report from Study
  Country: US (occurrence: US)
  Receive Date: 20230307
  Receipt Date: 20230307
  Transmission Date: 20230417
  Serious: Yes (Other)
  Sender: FDA-Public Use
  Company Number: US-ABBVIE-4274919

PATIENT
  Age: 64 Year
  Sex: Male
  Weight: 85.9 kg

DRUGS (2)
  1. IBRUTINIB [Suspect]
     Active Substance: IBRUTINIB
     Indication: Chronic lymphocytic leukaemia
     Dosage: CYCLE1-7, CYCLE LENGTH OF 28 DAYS
     Route: 048
     Dates: start: 20150827, end: 20221220
  2. RITUXIMAB [Concomitant]
     Active Substance: RITUXIMAB
     Indication: Chronic lymphocytic leukaemia
     Dosage: CYCLE 2:5 0MG/M2 IV OVER 4 HOURS ON DAY 1 AND 325MG/M2 IV ON DAY 2; CYCLES 3-7: 500MG/M2 IV ON DA...
     Route: 042
     Dates: start: 20150924, end: 20160211

REACTIONS (1)
  - Paronychia [Not Recovered/Not Resolved]

NARRATIVE: CASE EVENT DATE: 20220816
